FAERS Safety Report 8609509-8 (Version None)
Quarter: 2012Q3

REPORT INFORMATION
  Report Type: 
  Country: None (occurrence: None)
  Receive Date: 20120821
  Receipt Date: 20120814
  Transmission Date: 20120928
  Serious: Yes (Disabling, Other)
  Sender: FDA-Public Use
  Company Number: GB-PFIZER INC-2012163847

PATIENT
  Age: 39 Year
  Sex: Male

DRUGS (8)
  1. MIRTAZAPINE [Concomitant]
     Indication: DEPRESSION
     Dosage: 30 MG, UNK
     Route: 048
     Dates: start: 20120201
  2. NICOTINE [Concomitant]
     Dosage: UNK
  3. LYRICA [Suspect]
     Indication: ANXIETY
     Dosage: 900 MG, 2X/DAY
     Route: 048
     Dates: start: 20120201
  4. DIAZEPAM [Suspect]
     Dosage: 2 MG, 1X/DAY
     Dates: end: 20120203
  5. METHADONE [Concomitant]
     Indication: DRUG DEPENDENCE
     Dosage: 40ML DAILY
     Dates: start: 20120201
  6. AMPHETAMINES [Concomitant]
     Dosage: UNK
  7. DIAZEPAM [Suspect]
     Dosage: 30 MG, UNK
  8. CANNABIS [Concomitant]
     Dosage: UNK

REACTIONS (2)
  - DRUG DEPENDENCE [None]
  - WITHDRAWAL SYNDROME [None]
